FAERS Safety Report 25395199 (Version 1)
Quarter: 2025Q2

REPORT INFORMATION
  Report Type: Other
  Country: US (occurrence: US)
  Receive Date: 20250604
  Receipt Date: 20250604
  Transmission Date: 20250716
  Serious: Yes (Life-Threatening, Hospitalization, Other)
  Sender: Hibrow Healthcare
  Company Number: US-Hibrow Healthcare Private Ltd-2178020

PATIENT
  Age: 10 Year
  Sex: Female

DRUGS (2)
  1. ALBUTEROL SULFATE [Suspect]
     Active Substance: ALBUTEROL SULFATE
     Indication: Asthma
  2. MEXILETINE HCL [Concomitant]
     Active Substance: MEXILETINE HYDROCHLORIDE

REACTIONS (4)
  - Rhabdomyolysis [Recovered/Resolved]
  - Hyperthermia [Recovered/Resolved]
  - Myotonia [Recovered/Resolved]
  - Respiratory failure [Recovered/Resolved]
